FAERS Safety Report 6979585-7 (Version None)
Quarter: 2010Q3

REPORT INFORMATION
  Report Type: 
  Country: None (occurrence: None)
  Receive Date: 20100910
  Receipt Date: 20100910
  Transmission Date: 20110219
  Serious: Yes (Hospitalization)
  Sender: FDA-Public Use
  Company Number: None

PATIENT
  Sex: Female
  Weight: 48.4 kg

DRUGS (6)
  1. IMATINIB MESYLATE [Suspect]
     Indication: METASTATIC MALIGNANT MELANOMA
     Dosage: 400 MG DAILY PO
     Route: 048
     Dates: start: 20100831, end: 20100907
  2. ASPIRIN [Concomitant]
  3. COMPAZINE [Concomitant]
  4. LOVASTATIN [Concomitant]
  5. MULTI-VITAMIN [Concomitant]
  6. MILK OF MAGNESIA TAB [Concomitant]

REACTIONS (2)
  - ABDOMINAL PAIN [None]
  - ABSCESS INTESTINAL [None]
